FAERS Safety Report 21857415 (Version 4)
Quarter: 2023Q2

REPORT INFORMATION
  Report Type: Spontaneous
  Country: GB (occurrence: GB)
  Receive Date: 20230113
  Receipt Date: 20230604
  Transmission Date: 20230721
  Serious: Yes (Death, Life-Threatening, Hospitalization, Other)
  Sender: FDA-Public Use
  Company Number: GB-MHRA-MED-202212311732025540-HFJDW

PATIENT
  Age: 59 Year
  Sex: Male
  Weight: 76 kg

DRUGS (5)
  1. LAMOTRIGINE [Suspect]
     Active Substance: LAMOTRIGINE
     Indication: Seizure prophylaxis
     Dosage: 1 DOSAGE FORM, ONCE A DAY
     Route: 065
     Dates: start: 20220626, end: 20220809
  2. FELODIPINE [Concomitant]
     Active Substance: FELODIPINE
     Indication: Product used for unknown indication
     Dosage: UNK
     Route: 065
  3. RAMIPRIL [Concomitant]
     Active Substance: RAMIPRIL
     Indication: Hypertension
     Dosage: UNK
     Route: 065
  4. WARFARIN [Concomitant]
     Active Substance: WARFARIN
     Indication: Adverse drug reaction
     Dosage: UNK
     Route: 065
  5. WARFARIN [Concomitant]
     Active Substance: WARFARIN
     Indication: Aortic valve replacement

REACTIONS (40)
  - Haemophagocytic lymphohistiocytosis [Fatal]
  - Palpitations [Fatal]
  - Seizure [Fatal]
  - Cardiac arrest [Fatal]
  - Pyrexia [Fatal]
  - Lymphadenopathy [Fatal]
  - Haemorrhage [Fatal]
  - Contusion [Fatal]
  - Oropharyngeal pain [Fatal]
  - Hepatic enzyme increased [Fatal]
  - Nausea [Fatal]
  - Discomfort [Fatal]
  - Cough [Fatal]
  - Eczema [Fatal]
  - Bradykinesia [Fatal]
  - Restlessness [Fatal]
  - Heart rate increased [Fatal]
  - Pallor [Fatal]
  - Jaundice [Fatal]
  - Abdominal distension [Fatal]
  - Chromaturia [Fatal]
  - Bowel movement irregularity [Fatal]
  - Insomnia [Fatal]
  - Decreased appetite [Fatal]
  - Lethargy [Fatal]
  - Tremor [Fatal]
  - Malaise [Fatal]
  - Blood pressure decreased [Fatal]
  - Dyspnoea [Fatal]
  - International normalised ratio increased [Fatal]
  - Feeling cold [Fatal]
  - Chills [Fatal]
  - Depressed mood [Fatal]
  - Night sweats [Fatal]
  - Agitation [Fatal]
  - Dry mouth [Fatal]
  - Fatigue [Fatal]
  - Clumsiness [Fatal]
  - Vision blurred [Fatal]
  - Gait disturbance [Fatal]
